FAERS Safety Report 10601691 (Version 1)
Quarter: 2014Q4

REPORT INFORMATION
  Report Type: Spontaneous
  Country: US (occurrence: US)
  Receive Date: 20141124
  Receipt Date: 20141124
  Transmission Date: 20150529
  Serious: No
  Sender: FDA-Public Use
  Company Number: US-PFIZER INC-2014320065

PATIENT
  Age: 71 Year
  Sex: Male

DRUGS (1)
  1. TIKOSYN [Suspect]
     Active Substance: DOFETILIDE
     Indication: ATRIAL FIBRILLATION
     Dosage: UNK
     Dates: start: 201310

REACTIONS (4)
  - Dermatitis contact [Not Recovered/Not Resolved]
  - Incorrect dose administered [Unknown]
  - Pruritus [Not Recovered/Not Resolved]
  - Rash [Not Recovered/Not Resolved]

NARRATIVE: CASE EVENT DATE: 201410
